FAERS Safety Report 17346152 (Version 1)
Quarter: 2020Q1

REPORT INFORMATION
  Report Type: Spontaneous
  Country: CZ (occurrence: CZ)
  Receive Date: 20200129
  Receipt Date: 20200129
  Transmission Date: 20200409
  Serious: Yes (Other)
  Sender: FDA-Public Use
  Company Number: CZ-EXELIXIS-CABO-19021860

PATIENT
  Age: 66 Year
  Sex: Male

DRUGS (2)
  1. CABOMETYX [Suspect]
     Active Substance: CABOZANTINIB S-MALATE
     Indication: METASTATIC RENAL CELL CARCINOMA
     Dosage: 60 MG, QD
     Dates: start: 201810
  2. PAZOPANIB [Suspect]
     Active Substance: PAZOPANIB
     Indication: METASTATIC RENAL CELL CARCINOMA
     Dosage: 800 MG, UNK
     Route: 065

REACTIONS (6)
  - Malignant neoplasm progression [Recovering/Resolving]
  - Hepatic enzyme increased [Unknown]
  - Decreased appetite [Unknown]
  - Metastases to lung [Recovering/Resolving]
  - Diarrhoea [Unknown]
  - Metastases to bone [Recovering/Resolving]

NARRATIVE: CASE EVENT DATE: 201810
